FAERS Safety Report 20993772 (Version 1)
Quarter: 2022Q2

REPORT INFORMATION
  Report Type: Spontaneous
  Country: None (occurrence: OM)
  Receive Date: 20220622
  Receipt Date: 20220622
  Transmission Date: 20220721
  Serious: Yes (Other)
  Sender: FDA-Public Use
  Company Number: OM-Avion Pharmaceuticals, LLC-2130165

PATIENT
  Sex: Male

DRUGS (6)
  1. DHIVY [Suspect]
     Active Substance: CARBIDOPA\LEVODOPA
     Indication: Parkinson^s disease
     Route: 065
  2. AMANTADINE. [Suspect]
     Active Substance: AMANTADINE HYDROCHLORIDE
     Route: 065
  3. SINEMET [Suspect]
     Active Substance: CARBIDOPA\LEVODOPA
     Route: 065
  4. SINEMET CR [Suspect]
     Active Substance: CARBIDOPA\LEVODOPA
     Route: 065
  5. VALPROIC ACID [Suspect]
     Active Substance: VALPROIC ACID
     Route: 065
  6. ARIPIPRAZOLE [Suspect]
     Active Substance: ARIPIPRAZOLE
     Route: 065

REACTIONS (8)
  - Dopamine dysregulation syndrome [Unknown]
  - Intentional product misuse [Unknown]
  - Parkinsonism [Unknown]
  - Dystonia [Unknown]
  - Dyskinesia [Recovering/Resolving]
  - Aggression [Unknown]
  - Compulsive shopping [Recovered/Resolved]
  - Compulsive hoarding [Unknown]
